FAERS Safety Report 25737640 (Version 1)
Quarter: 2025Q3

REPORT INFORMATION
  Report Type: Spontaneous
  Country: CN (occurrence: CN)
  Receive Date: 20250828
  Receipt Date: 20250828
  Transmission Date: 20251021
  Serious: Yes (Disabling, Other)
  Sender: ABBVIE
  Company Number: CN-ABBVIE-6433248

PATIENT
  Age: 44 Year
  Sex: Female
  Weight: 55 kg

DRUGS (9)
  1. VENCLEXTA [Suspect]
     Active Substance: VENETOCLAX
     Indication: Acute leukaemia
     Dosage: 100 MILLIGRAM
     Route: 048
     Dates: start: 20250801, end: 20250801
  2. VENCLEXTA [Suspect]
     Active Substance: VENETOCLAX
     Indication: Acute leukaemia
     Dosage: 200 MILLIGRAM
     Route: 048
     Dates: start: 20250802, end: 20250802
  3. VENCLEXTA [Suspect]
     Active Substance: VENETOCLAX
     Indication: Acute leukaemia
     Dosage: 400 MILLIGRAM
     Route: 048
     Dates: start: 20250803, end: 20250810
  4. STERILE WATER [Concomitant]
     Active Substance: WATER
     Indication: Acute leukaemia
     Route: 058
     Dates: start: 20250801, end: 20250807
  5. CYTARABINE [Suspect]
     Active Substance: CYTARABINE
     Indication: Acute leukaemia
     Dosage: 100 MILLIGRAM
     Route: 042
     Dates: start: 20250730, end: 20250805
  6. SODIUM CHLORIDE [Concomitant]
     Active Substance: SODIUM CHLORIDE
     Indication: Product used for unknown indication
     Dosage: 250 ML
     Route: 042
     Dates: start: 20250731, end: 20250802
  7. SODIUM CHLORIDE [Concomitant]
     Active Substance: SODIUM CHLORIDE
     Indication: Product used for unknown indication
     Dosage: 100 ML
     Route: 042
     Dates: start: 20250730, end: 20250805
  8. DOXORUBICIN HYDROCHLORIDE [Suspect]
     Active Substance: DOXORUBICIN HYDROCHLORIDE
     Indication: Acute leukaemia
     Dosage: 100 MILLIGRAM
     Route: 042
     Dates: start: 20250731, end: 20250802
  9. AZACITIDINE [Suspect]
     Active Substance: AZACITIDINE
     Indication: Acute leukaemia
     Dosage: 120 MILLIGRAM
     Route: 058
     Dates: start: 20250801, end: 20250807

REACTIONS (3)
  - White blood cell count decreased [Recovering/Resolving]
  - Myelosuppression [Recovering/Resolving]
  - Granulocyte count decreased [Recovering/Resolving]

NARRATIVE: CASE EVENT DATE: 20250812
